FAERS Safety Report 5001265-8 (Version None)
Quarter: 2006Q2

REPORT INFORMATION
  Report Type: 
  Country: None (occurrence: None)
  Receive Date: 20060512
  Receipt Date: 20060505
  Transmission Date: 20061013
  Serious: Yes (Other)
  Sender: FDA-Public Use
  Company Number: CA-ABBOTT-06P-028-0332619-00

PATIENT
  Sex: Female
  Weight: 55 kg

DRUGS (4)
  1. HUMIRA [Suspect]
     Indication: RHEUMATOID ARTHRITIS
     Route: 058
     Dates: start: 20060420
  2. PREDNISONE TAB [Concomitant]
     Indication: DRUG USE FOR UNKNOWN INDICATION
  3. GLUCOSAMINE [Concomitant]
     Indication: DRUG USE FOR UNKNOWN INDICATION
  4. EVENING PRIME ROSE OIL [Concomitant]
     Indication: DRUG USE FOR UNKNOWN INDICATION

REACTIONS (2)
  - HAEMATOCHEZIA [None]
  - HAEMORRHOID OPERATION [None]
